FAERS Safety Report 9239991 (Version 1)
Quarter: 2013Q2

REPORT INFORMATION
  Report Type: Spontaneous
  Country: US (occurrence: US)
  Receive Date: 20130418
  Receipt Date: 20130418
  Transmission Date: 20140414
  Serious: No
  Sender: FDA-Public Use
  Company Number: US-SANOFI-AVENTIS-2012SA025362

PATIENT
  Sex: Female

DRUGS (2)
  1. LOVENOX [Suspect]
     Indication: THROMBOSIS
     Route: 065
     Dates: start: 20120410
  2. COUMADIN [Concomitant]

REACTIONS (1)
  - Musculoskeletal pain [Unknown]
